FAERS Safety Report 10307597 (Version 1)
Quarter: 2014Q3

REPORT INFORMATION
  Report Type: Spontaneous
  Country: JP (occurrence: JP)
  Receive Date: 20140716
  Receipt Date: 20140716
  Transmission Date: 20150326
  Serious: Yes (Death, Other)
  Sender: FDA-Public Use
  Company Number: PHHY2013JP158220

PATIENT
  Age: 72 Year
  Sex: Male

DRUGS (2)
  1. AZATHIOPRINE. [Suspect]
     Active Substance: AZATHIOPRINE
  2. EXJADE [Suspect]
     Active Substance: DEFERASIROX
     Dosage: 500 MG, UNK

REACTIONS (2)
  - Acute myeloid leukaemia [Fatal]
  - Haematotoxicity [Fatal]
